FAERS Safety Report 8130097-7 (Version None)
Quarter: 2012Q1

REPORT INFORMATION
  Report Type: 
  Country: None (occurrence: None)
  Receive Date: 20120210
  Receipt Date: 20120206
  Transmission Date: 20120608
  Serious: Yes (Other)
  Sender: FDA-Public Use
  Company Number: BR-PFIZER INC-2012010646

PATIENT
  Age: 49 Year
  Sex: Female
  Weight: 75 kg

DRUGS (5)
  1. VARENICLINE TARTRATE [Suspect]
     Dosage: 1 MG (ONE TABLET), 2XDAY (EVERY 12 HOURS)
     Route: 048
     Dates: start: 20110101, end: 20120203
  2. BUPROPION HYDROCHLORIDE [Concomitant]
     Indication: ANTIDEPRESSANT THERAPY
     Dosage: 150 MG, 1X/DAY
     Dates: start: 20080101
  3. LEVOTHYROXINE SODIUM [Concomitant]
     Indication: HYPOTHYROIDISM
  4. VARENICLINE TARTRATE [Suspect]
     Indication: TOBACCO ABUSE
     Dosage: UNK
     Route: 048
     Dates: start: 20111124, end: 20110101
  5. LEVOTHYROXINE SODIUM [Concomitant]
     Indication: THYROID DISORDER
     Dosage: 75 UG, 1X/DAY
     Dates: start: 20111001

REACTIONS (12)
  - DISTURBANCE IN ATTENTION [None]
  - FATIGUE [None]
  - IMPAIRED DRIVING ABILITY [None]
  - DIZZINESS [None]
  - SWELLING [None]
  - NERVOUSNESS [None]
  - DAYDREAMING [None]
  - PARANOIA [None]
  - PALPITATIONS [None]
  - TACHYCARDIA [None]
  - FEAR [None]
  - NIGHTMARE [None]
